FAERS Safety Report 5694721-0 (Version None)
Quarter: 2008Q2

REPORT INFORMATION
  Report Type: 
  Country: None (occurrence: None)
  Receive Date: 20080404
  Receipt Date: 20080402
  Transmission Date: 20081010
  Serious: Yes (Disabling)
  Sender: FDA-Public Use
  Company Number: B0515295A

PATIENT
  Age: 73 Year
  Sex: Male

DRUGS (4)
  1. AVANDAMET [Suspect]
     Route: 048
     Dates: start: 20060901
  2. PLAVIX [Concomitant]
     Indication: CEREBROVASCULAR ACCIDENT
     Dosage: 75MG PER DAY
     Route: 048
     Dates: start: 20030101
  3. AVANDIA [Concomitant]
     Route: 048
     Dates: start: 20060201, end: 20060901
  4. METFORMIN HCL [Concomitant]
     Route: 048
     Dates: start: 20050101, end: 20060901

REACTIONS (1)
  - DEMENTIA ALZHEIMER'S TYPE [None]
